FAERS Safety Report 25640323 (Version 1)
Quarter: 2025Q3

REPORT INFORMATION
  Report Type: Spontaneous
  Country: CN (occurrence: CN)
  Receive Date: 20250804
  Receipt Date: 20250804
  Transmission Date: 20251021
  Serious: Yes (Other)
  Sender: ORGANON
  Company Number: CN-ORGANON-O2507CHN002892

PATIENT
  Age: 61 Year
  Sex: Female
  Weight: 55 kg

DRUGS (4)
  1. DIPROSPAN [Suspect]
     Active Substance: BETAMETHASONE DIPROPIONATE\BETAMETHASONE SODIUM PHOSPHATE
     Indication: Arthralgia
     Dosage: 1 VIAL, QD, TOPICALLY||
     Route: 061
     Dates: start: 20250630, end: 20250630
  2. ROPIVACAINE HYDROCHLORIDE [Suspect]
     Active Substance: ROPIVACAINE HYDROCHLORIDE
     Indication: Anaesthesia
     Dosage: 1 VIAL, QD, TOPICALLY||
     Route: 061
     Dates: start: 20250630, end: 20250630
  3. SODIUM HYALURONATE [Concomitant]
     Active Substance: HYALURONATE SODIUM
     Indication: Arthralgia
     Dosage: 1 VIAL, QD, TOPICALLY||
     Route: 061
     Dates: start: 20250630, end: 20250630
  4. EPERISONE HYDROCHLORIDE [Concomitant]
     Active Substance: EPERISONE HYDROCHLORIDE
     Indication: Arthralgia
     Dosage: 1 DOSAGE FORM, TID
     Route: 048
     Dates: start: 20250630, end: 20250702

REACTIONS (5)
  - Pruritus [Unknown]
  - Flushing [Unknown]
  - Dermatitis allergic [Unknown]
  - Eczema [Unknown]
  - Product use in unapproved indication [Unknown]

NARRATIVE: CASE EVENT DATE: 20250630
